FAERS Safety Report 8511199-X (Version None)
Quarter: 2012Q3

REPORT INFORMATION
  Report Type: 
  Country: None (occurrence: None)
  Receive Date: 20120716
  Receipt Date: 20120704
  Transmission Date: 20120928
  Serious: Yes (Other)
  Sender: FDA-Public Use
  Company Number: SA-MPIJNJ-2012-04712

PATIENT

DRUGS (3)
  1. INSULIN [Concomitant]
     Dosage: 8 DF, UNK
     Route: 058
  2. VELCADE [Suspect]
     Indication: MULTIPLE MYELOMA
     Dosage: 1.3 MG/M2, UNK
     Route: 042
  3. DEXAMETHASONE [Concomitant]
     Dosage: 40 MG, UNK
     Route: 048

REACTIONS (3)
  - PULMONARY FIBROSIS [None]
  - PULMONARY CONGESTION [None]
  - LUNG INFECTION [None]
